FAERS Safety Report 7586692-7 (Version None)
Quarter: 2011Q3

REPORT INFORMATION
  Report Type: 
  Country: None (occurrence: None)
  Receive Date: 20110701
  Receipt Date: 20110616
  Transmission Date: 20111222
  Serious: Yes (Hospitalization)
  Sender: FDA-Public Use
  Company Number: IT-BAYER-2011-052025

PATIENT
  Age: 80 Year
  Sex: Male

DRUGS (3)
  1. DILTIAZEM [Concomitant]
     Dosage: DAILY DOSE 240 MG
     Route: 048
  2. ASPIRIN [Suspect]
     Indication: ISCHAEMIC CARDIOMYOPATHY
     Dosage: 100 MG, QD
     Route: 048
     Dates: start: 20100101, end: 20110322
  3. SIMVASTATIN [Concomitant]

REACTIONS (1)
  - ANAEMIA [None]
